FAERS Safety Report 17536242 (Version 1)
Quarter: 2020Q1

REPORT INFORMATION
  Report Type: Spontaneous
  Country: GB (occurrence: GB)
  Receive Date: 20200313
  Receipt Date: 20200313
  Transmission Date: 20200409
  Serious: Yes (Other)
  Sender: FDA-Public Use
  Company Number: GB-TEVA-2020-GB-1199279

PATIENT
  Age: 1 Year
  Sex: Female
  Weight: 9 kg

DRUGS (3)
  1. AMOXICILLIN. [Suspect]
     Active Substance: AMOXICILLIN
     Dosage: 125MG/5ML
     Route: 065
     Dates: start: 20191021
  2. NYSTAN [Concomitant]
     Active Substance: NYSTATIN
     Dosage: CONTINUE FOR 48 HOURS AFT..
     Dates: start: 20200217
  3. BENZYDAMINE HYDROCHLORIDE [Concomitant]
     Active Substance: BENZYDAMINE HYDROCHLORIDE
     Dates: start: 20200217

REACTIONS (2)
  - Rash [Recovered/Resolved]
  - Swelling [Recovered/Resolved]

NARRATIVE: CASE EVENT DATE: 20191021
